FAERS Safety Report 9918641 (Version 2)
Quarter: 2014Q1

REPORT INFORMATION
  Report Type: Spontaneous
  Country: CH (occurrence: CH)
  Receive Date: 20140224
  Receipt Date: 20140313
  Transmission Date: 20141002
  Serious: Yes (Death, Hospitalization)
  Sender: FDA-Public Use
  Company Number: CH-BRISTOL-MYERS SQUIBB COMPANY-20219069

PATIENT
  Age: 64 Year
  Sex: Male

DRUGS (1)
  1. YERVOY [Suspect]
     Dosage: 225 MG IN BOTH CYCLES.
     Dates: start: 20131122

REACTIONS (2)
  - Malignant neoplasm progression [Fatal]
  - Diverticulitis [Unknown]
